FAERS Safety Report 4625870-3 (Version None)
Quarter: 2005Q1

REPORT INFORMATION
  Report Type: 
  Country: None (occurrence: None)
  Receive Date: 20050330
  Receipt Date: 20050315
  Transmission Date: 20050727
  Serious: Yes (Hospitalization)
  Sender: FDA-Public Use
  Company Number: STA-AE-05-008

PATIENT
  Age: 30 Year
  Sex: Male

DRUGS (10)
  1. NAPROXEN [Suspect]
     Dosage: 500 MG
  2. LOFEXIDINE [Concomitant]
  3. METOCLOPRAMIDE [Concomitant]
  4. HYDROXYZINE [Concomitant]
  5. PARACETAMOL [Concomitant]
  6. DIAZEPAM [Concomitant]
  7. PROMAZINE HCL [Concomitant]
  8. DOXEPIN HCL [Concomitant]
  9. POTASSIUM CHLORIDE [Concomitant]
  10. MAGNESIUM HYDROXIDE TAB [Concomitant]

REACTIONS (10)
  - CHEILITIS [None]
  - DERMATITIS BULLOUS [None]
  - DRUG ERUPTION [None]
  - FACE OEDEMA [None]
  - GENITAL EROSION [None]
  - GINGIVAL DISORDER [None]
  - LIP HAEMORRHAGE [None]
  - OEDEMA GENITAL [None]
  - SCROTAL OEDEMA [None]
  - SCROTAL ULCER [None]
